FAERS Safety Report 10080259 (Version 1)
Quarter: 2014Q2

REPORT INFORMATION
  Report Type: Spontaneous
  Country: US (occurrence: US)
  Receive Date: 20140415
  Receipt Date: 20140415
  Transmission Date: 20141212
  Serious: No
  Sender: FDA-Public Use
  Company Number: US-BAXTER-2014BAX017282

PATIENT
  Age: 62 Year
  Sex: Male

DRUGS (6)
  1. GAMMAGARD LIQUID [Suspect]
     Indication: NEUROPATHY PERIPHERAL
     Route: 042
     Dates: start: 2009, end: 201402
  2. GAMMAGARD LIQUID [Suspect]
     Indication: OFF LABEL USE
  3. LISINOPRIL HCTZ [Concomitant]
     Indication: HYPERTENSION
     Dosage: 20/12; 0.5 MG
     Route: 048
  4. CLONIDINE [Concomitant]
     Indication: HYPERTENSION
     Route: 048
  5. GABAPENTIN [Concomitant]
     Indication: NEUROPATHY PERIPHERAL
     Route: 048
  6. CARVEDILOL [Concomitant]
     Indication: HYPERTENSION
     Route: 048

REACTIONS (5)
  - Muscle disorder [Not Recovered/Not Resolved]
  - Hypokinesia [Not Recovered/Not Resolved]
  - Muscular weakness [Not Recovered/Not Resolved]
  - Muscular weakness [Not Recovered/Not Resolved]
  - Dyspnoea [Unknown]
